FAERS Safety Report 11146681 (Version 11)
Quarter: 2016Q2

REPORT INFORMATION
  Report Type: Report from Study
  Country: US (occurrence: US)
  Receive Date: 20150528
  Receipt Date: 20160628
  Transmission Date: 20160815
  Serious: Yes (Hospitalization, Other)
  Sender: FDA-Public Use
  Company Number: US-ALXN-A201501857AA

PATIENT
  Age: 23 Year
  Sex: Male

DRUGS (6)
  1. SOLIRIS [Suspect]
     Active Substance: ECULIZUMAB
     Indication: HAEMOLYTIC URAEMIC SYNDROME
     Dosage: 900 MG, QW
     Route: 042
     Dates: start: 20150504
  2. OPANA [Suspect]
     Active Substance: OXYMORPHONE HYDROCHLORIDE
     Indication: PRODUCT USED FOR UNKNOWN INDICATION
     Dosage: UNK
     Route: 065
  3. SOLIRIS [Suspect]
     Active Substance: ECULIZUMAB
     Dosage: 1500 MG, QW
     Route: 042
  4. SOLIRIS [Suspect]
     Active Substance: ECULIZUMAB
     Dosage: 1200 MG, QW
     Route: 042
  5. SOLIRIS [Suspect]
     Active Substance: ECULIZUMAB
     Dosage: 900 MG, QW
     Route: 042
     Dates: end: 20150709
  6. SOLIRIS [Suspect]
     Active Substance: ECULIZUMAB
     Dosage: 1200 MG, Q2W
     Route: 042
     Dates: start: 20150520

REACTIONS (37)
  - Haemoptysis [Unknown]
  - Seizure [Recovering/Resolving]
  - Blood pressure systolic increased [Recovering/Resolving]
  - Thrombotic microangiopathy [Unknown]
  - Drug ineffective [Unknown]
  - Platelet count abnormal [Unknown]
  - Atrial fibrillation [Unknown]
  - Blood lactate dehydrogenase increased [Unknown]
  - Vomiting [Unknown]
  - Headache [Unknown]
  - Drug effect incomplete [Unknown]
  - Pain [Recovering/Resolving]
  - Device related infection [Recovered/Resolved]
  - Drug abuse [Unknown]
  - Dyspnoea [Unknown]
  - Platelet count decreased [Recovered/Resolved]
  - Renal pain [Unknown]
  - Blood creatinine increased [Unknown]
  - Pulmonary congestion [Unknown]
  - Urine output decreased [Unknown]
  - Renal pain [Unknown]
  - Renal pain [Unknown]
  - Platelet count decreased [Unknown]
  - Nausea [Unknown]
  - Platelet count decreased [Unknown]
  - Fungal infection [Recovered/Resolved]
  - Haptoglobin decreased [Unknown]
  - Incorrect dose administered [Not Recovered/Not Resolved]
  - Malaise [Recovering/Resolving]
  - Vomiting [Recovering/Resolving]
  - Malaise [Unknown]
  - Inappropriate schedule of drug administration [Not Recovered/Not Resolved]
  - Heart rate increased [Unknown]
  - Hypertension [Not Recovered/Not Resolved]
  - Hypertension [Not Recovered/Not Resolved]
  - Blood pressure increased [Recovered/Resolved]
  - Haemoglobin decreased [Unknown]

NARRATIVE: CASE EVENT DATE: 20150517
